FAERS Safety Report 5305568-9 (Version None)
Quarter: 2007Q2

REPORT INFORMATION
  Report Type: 
  Country: None (occurrence: None)
  Receive Date: 20070424
  Receipt Date: 20070416
  Transmission Date: 20071010
  Serious: Yes (Hospitalization)
  Sender: FDA-Public Use
  Company Number: FR-AVENTIS-200711333FR

PATIENT
  Age: 59 Year
  Sex: Female

DRUGS (3)
  1. LASILIX                            /00032601/ [Suspect]
     Indication: DRUG USE FOR UNKNOWN INDICATION
     Route: 048
     Dates: end: 20070310
  2. MEPRONIZINE                        /00789201/ [Suspect]
     Indication: DRUG USE FOR UNKNOWN INDICATION
     Route: 048
  3. KALEORID [Concomitant]
     Route: 048
     Dates: start: 20070125, end: 20070129

REACTIONS (2)
  - ELECTROCARDIOGRAM QT PROLONGED [None]
  - FALL [None]
